FAERS Safety Report 18508325 (Version 2)
Quarter: 2020Q4

REPORT INFORMATION
  Report Type: Report from Study
  Country: BR (occurrence: BR)
  Receive Date: 20201116
  Receipt Date: 20201208
  Transmission Date: 20210114
  Serious: Yes (Death, Hospitalization, Other)
  Sender: FDA-Public Use
  Company Number: BR-GILEAD-2020-0489350

PATIENT
  Age: 48 Year
  Sex: Female
  Weight: 65 kg

DRUGS (28)
  1. PRECEDEX [Concomitant]
     Active Substance: DEXMEDETOMIDINE HYDROCHLORIDE
     Indication: ANXIETY
     Dates: start: 20200728
  2. HEPARIN [Concomitant]
     Active Substance: HEPARIN SODIUM
  3. HIDROCORTISONA [HYDROCORTISONE] [Concomitant]
     Active Substance: HYDROCORTISONE
  4. POTASSIUM PHOSPHATE DIBASIC;POTASSIUM PHOSPHATE MONOBASIC [Concomitant]
  5. THIAMINE. [Concomitant]
     Active Substance: THIAMINE
  6. PRECEDEX [Concomitant]
     Active Substance: DEXMEDETOMIDINE HYDROCHLORIDE
     Indication: PROPHYLAXIS
     Dosage: 20 MG, QD
     Dates: start: 20200728
  7. TAMIFLU [Concomitant]
     Active Substance: OSELTAMIVIR PHOSPHATE
     Dosage: SUSPECT OF INFLUENZA
     Dates: start: 20200728
  8. ENCRISE [Concomitant]
  9. PLAMET [Concomitant]
     Active Substance: BROMOPRIDE
  10. PROPOFOL. [Concomitant]
     Active Substance: PROPOFOL
  11. REMDESIVIR. [Suspect]
     Active Substance: REMDESIVIR
     Dosage: UNK
     Route: 042
     Dates: start: 20200730
  12. ENOXAPARIN [Concomitant]
     Active Substance: ENOXAPARIN
     Indication: PROPHYLAXIS
     Dosage: 40 MG, QD
     Dates: start: 20200728
  13. DORMONID [MIDAZOLAM] [Concomitant]
  14. TOCILIZUMAB. [Suspect]
     Active Substance: TOCILIZUMAB
     Dosage: 100 ML
     Route: 042
     Dates: start: 20200729
  15. TAZOCIN [Concomitant]
     Active Substance: PIPERACILLIN SODIUM\TAZOBACTAM SODIUM
     Indication: COVID-19
     Dates: start: 20200728
  16. DEXAMETHASONE. [Concomitant]
     Active Substance: DEXAMETHASONE
     Indication: COVID-19
     Dates: start: 20200728
  17. DIPYRONE [Concomitant]
     Active Substance: DIPYRONE
     Indication: COVID-19
     Dates: start: 20200728
  18. INSULIN [Concomitant]
     Active Substance: INSULIN NOS
     Indication: DIABETES MELLITUS
  19. ROCURONIO [Concomitant]
     Active Substance: ROCURONIUM BROMIDE
  20. DEXTROCETAMINE [Concomitant]
  21. BROMOPRIDE [Concomitant]
     Active Substance: BROMOPRIDE
     Indication: COVID-19
     Dates: start: 20200728
  22. MAGNESIUM SULFATE. [Concomitant]
     Active Substance: MAGNESIUM SULFATE
     Indication: HYPOMAGNESAEMIA
     Dates: start: 20200728, end: 20200728
  23. NORADRENALINE (NORPINEPHRINE) [Concomitant]
     Active Substance: NOREPINEPHRINE
  24. REMDESIVIR. [Suspect]
     Active Substance: REMDESIVIR
     Indication: COVID-19 PNEUMONIA
     Dosage: UNK UNK, ONCE
     Route: 042
     Dates: start: 20200729, end: 20200729
  25. TOCILIZUMAB. [Suspect]
     Active Substance: TOCILIZUMAB
     Indication: COVID-19 PNEUMONIA
     Dosage: UNK
     Route: 042
     Dates: start: 20200729
  26. AZITHROMYCIN ANHYDROUS. [Concomitant]
     Active Substance: AZITHROMYCIN ANHYDROUS
     Indication: COVID-19
     Dates: start: 20200728
  27. OMEPRAZOLE. [Concomitant]
     Active Substance: OMEPRAZOLE
     Indication: PROPHYLAXIS
     Dates: start: 20200728
  28. LASIX [Concomitant]
     Active Substance: FUROSEMIDE

REACTIONS (3)
  - Acute kidney injury [Not Recovered/Not Resolved]
  - Multiple organ dysfunction syndrome [Fatal]
  - Acidosis [Not Recovered/Not Resolved]

NARRATIVE: CASE EVENT DATE: 20200729
